FAERS Safety Report 18179441 (Version 1)
Quarter: 2020Q3

REPORT INFORMATION
  Report Type: Spontaneous
  Country: US (occurrence: US)
  Receive Date: 20200820
  Receipt Date: 20200820
  Transmission Date: 20201103
  Serious: No
  Sender: FDA-Public Use
  Company Number: US-009507513-2008USA008864

PATIENT
  Age: 42 Year
  Sex: Male

DRUGS (11)
  1. CINACALCET. [Concomitant]
     Active Substance: CINACALCET
     Dosage: 30 MILLIGRAM, QD
  2. METOPROLOL. [Concomitant]
     Active Substance: METOPROLOL
     Dosage: 100 MILLIGRAM, BID
  3. GABAPENTIN. [Concomitant]
     Active Substance: GABAPENTIN
     Dosage: 100 MILLIGRAM, HS
  4. PRIMAXIN IV [Suspect]
     Active Substance: CILASTATIN SODIUM\IMIPENEM
     Indication: CITROBACTER INFECTION
     Route: 042
  5. NIFEDIPINE. [Concomitant]
     Active Substance: NIFEDIPINE
     Dosage: EXTENDED RELEASE; 60 MILLIGRAM, QD
  6. CEFTAZIDIME. [Suspect]
     Active Substance: CEFTAZIDIME
     Indication: CITROBACTER INFECTION
     Route: 033
  7. ATORVASTATIN [Concomitant]
     Active Substance: ATORVASTATIN
     Dosage: 80 MILLIGRAM, QD
  8. SEVELAMER [Concomitant]
     Active Substance: SEVELAMER
     Dosage: 2400 MG, TID WITH MEALS
  9. INSULIN GLARGINE [Concomitant]
     Active Substance: INSULIN GLARGINE
     Dosage: 15 UNITS, QD, INSULIN SLIDING SCALE
  10. CIPROFLOXACIN. [Concomitant]
     Active Substance: CIPROFLOXACIN
     Indication: CITROBACTER INFECTION
     Route: 048
  11. CALCITROL [Concomitant]
     Dosage: 0.5 MICROGRAM, QD

REACTIONS (1)
  - Treatment failure [Unknown]
